FAERS Safety Report 8371082-X (Version None)
Quarter: 2012Q2

REPORT INFORMATION
  Report Type: 
  Country: None (occurrence: None)
  Receive Date: 20120518
  Receipt Date: 20111115
  Transmission Date: 20120825
  Serious: Yes (Hospitalization)
  Sender: FDA-Public Use
  Company Number: US-BRISTOL-MYERS SQUIBB COMPANY-16232449

PATIENT
  Sex: Female

DRUGS (1)
  1. BARACLUDE [Suspect]

REACTIONS (1)
  - ADVERSE EVENT [None]
